FAERS Safety Report 5269177-2 (Version None)
Quarter: 2007Q1

REPORT INFORMATION
  Report Type: 
  Country: None (occurrence: None)
  Receive Date: 20070319
  Receipt Date: 20070312
  Transmission Date: 20070707
  Serious: Yes (Hospitalization)
  Sender: FDA-Public Use
  Company Number: DE-SHR-DE-2007-008791

PATIENT
  Sex: Male

DRUGS (1)
  1. BETASERON [Suspect]
     Route: 058
     Dates: start: 19990101, end: 20061231

REACTIONS (1)
  - MUSCLE SPASTICITY [None]
